FAERS Safety Report 24553710 (Version 3)
Quarter: 2025Q1

REPORT INFORMATION
  Report Type: Report from Study
  Country: MX (occurrence: MX)
  Receive Date: 20241028
  Receipt Date: 20250218
  Transmission Date: 20250409
  Serious: Yes (Hospitalization, Disabling, Other)
  Sender: NOVARTIS
  Company Number: MX-002147023-NVSC2024MX003406

PATIENT
  Age: 32 Year
  Sex: Female
  Weight: 63 kg

DRUGS (10)
  1. TASIGNA [Suspect]
     Active Substance: NILOTINIB
     Indication: Chronic myeloid leukaemia
     Dosage: 1 DOSAGE FORM, BID (EVERY 12 HOURS/ ONCE IN THE MORNING AND ONCE IN THE AFTERNOON)
     Route: 048
  2. TASIGNA [Suspect]
     Active Substance: NILOTINIB
     Route: 048
  3. TASIGNA [Suspect]
     Active Substance: NILOTINIB
     Route: 048
  4. TASIGNA [Suspect]
     Active Substance: NILOTINIB
     Dosage: 400 MG (2 OF 200 MG), BID (TWICE A DAY/ IN THE MORNING AND AT NIGHT))
     Route: 048
  5. TASIGNA [Suspect]
     Active Substance: NILOTINIB
     Dosage: 200 MG, Q12H
     Route: 048
     Dates: start: 202008
  6. TASIGNA [Suspect]
     Active Substance: NILOTINIB
     Route: 048
     Dates: start: 2020
  7. TASIGNA [Suspect]
     Active Substance: NILOTINIB
     Route: 048
  8. TASIGNA [Suspect]
     Active Substance: NILOTINIB
     Dosage: 2 DOSAGE FORM, QD (2 OF 200 MG), DAILY
     Route: 048
  9. TASIGNA [Suspect]
     Active Substance: NILOTINIB
     Dosage: 2 DOSAGE FORM, Q12H (2 OF 200 MG)
     Route: 048
  10. TASIGNA [Suspect]
     Active Substance: NILOTINIB
     Dosage: 2 DOSAGE FORM, BID
     Route: 048
     Dates: start: 2020

REACTIONS (49)
  - Hepatitis [Unknown]
  - Pulmonary congestion [Unknown]
  - Abdominal pain [Unknown]
  - Carpal tunnel syndrome [Not Recovered/Not Resolved]
  - Yellow skin [Unknown]
  - Nausea [Unknown]
  - Pain [Unknown]
  - Decreased appetite [Recovered/Resolved]
  - Mobility decreased [Not Recovered/Not Resolved]
  - Skin lesion [Not Recovered/Not Resolved]
  - Pain in extremity [Not Recovered/Not Resolved]
  - Inflammation [Not Recovered/Not Resolved]
  - Hypothyroidism [Not Recovered/Not Resolved]
  - Chronic myeloid leukaemia [Unknown]
  - Malignant neoplasm progression [Unknown]
  - Vomiting [Unknown]
  - Crying [Recovered/Resolved]
  - Eye inflammation [Unknown]
  - Muscle contracture [Unknown]
  - Emotional disorder [Recovered/Resolved]
  - Bladder pain [Unknown]
  - Fibromyalgia [Unknown]
  - Asthenia [Unknown]
  - Anxiety [Recovered/Resolved]
  - Depression [Unknown]
  - Fatigue [Recovering/Resolving]
  - Dizziness [Unknown]
  - Hypertension [Unknown]
  - Urinary tract infection [Unknown]
  - Malaise [Unknown]
  - Depressed mood [Unknown]
  - Weight increased [Recovered/Resolved]
  - Alopecia [Unknown]
  - Polymerase chain reaction positive [Unknown]
  - Cough [Recovered/Resolved]
  - Feeling of body temperature change [Unknown]
  - Pyrexia [Unknown]
  - Feeling cold [Unknown]
  - Hyperhidrosis [Recovered/Resolved]
  - Tachycardia [Recovered/Resolved]
  - Pallor [Recovered/Resolved]
  - Fear [Recovered/Resolved]
  - Thyroid function test abnormal [Unknown]
  - Joint injury [Unknown]
  - Incorrect dose administered [Unknown]
  - Anxiety [Recovered/Resolved]
  - Nasopharyngitis [Unknown]
  - Cough [Unknown]
  - Nail disorder [Unknown]

NARRATIVE: CASE EVENT DATE: 20140205
